FAERS Safety Report 5906618-9 (Version None)
Quarter: 2008Q4

REPORT INFORMATION
  Report Type: 
  Country: None (occurrence: None)
  Receive Date: 20081002
  Receipt Date: 20080924
  Transmission Date: 20090506
  Serious: Yes (Other)
  Sender: FDA-Public Use
  Company Number: US-AMGEN-QUU293765

PATIENT
  Sex: Male
  Weight: 145.7 kg

DRUGS (21)
  1. ENBREL [Suspect]
     Indication: RHEUMATOID ARTHRITIS
     Route: 058
     Dates: start: 20051001, end: 20080401
  2. ENBREL [Suspect]
     Indication: PSORIASIS
  3. ENBREL [Suspect]
     Indication: PSORIATIC ARTHROPATHY
  4. LEFLUNOMIDE [Concomitant]
     Dates: start: 20030801, end: 20051001
  5. METFORMIN HCL [Concomitant]
     Route: 048
  6. CYMBALTA [Concomitant]
     Route: 048
  7. HUMULIN 70/30 [Concomitant]
     Route: 058
  8. LANTUS [Concomitant]
     Route: 058
  9. MAGNESIUM OXIDE [Concomitant]
     Route: 048
  10. MULTI-VITAMINS [Concomitant]
     Route: 048
  11. NADOLOL [Concomitant]
  12. PANTOPRAZOLE SODIUM [Concomitant]
     Route: 048
  13. SPIRONOLACTONE [Concomitant]
     Route: 048
  14. ACETAMINOPHEN AND CODEINE PHOSPHATE [Concomitant]
     Route: 048
  15. POTASSIUM CHLORIDE [Concomitant]
     Route: 048
  16. FUROSEMIDE [Concomitant]
     Route: 048
  17. LISINOPRIL [Concomitant]
     Route: 048
  18. UNSPECIFIED MEDICATION [Concomitant]
     Route: 061
  19. ASCORBIC ACID [Concomitant]
     Route: 048
  20. MELOXICAM [Concomitant]
     Dates: start: 20070501
  21. ASPIRIN [Concomitant]

REACTIONS (29)
  - BONE MARROW FAILURE [None]
  - CELLULITIS [None]
  - COLON ADENOMA [None]
  - DEPRESSION [None]
  - DRUG EFFECT DECREASED [None]
  - EROSIVE OESOPHAGITIS [None]
  - GASTRIC ANTRAL VASCULAR ECTASIA [None]
  - GASTRIC ULCER [None]
  - GASTRITIS EROSIVE [None]
  - GUTTATE PSORIASIS [None]
  - HELICOBACTER INFECTION [None]
  - HEPATIC CIRRHOSIS [None]
  - HEPATIC ENCEPHALOPATHY [None]
  - HYPOCALCAEMIA [None]
  - IDIOPATHIC THROMBOCYTOPENIC PURPURA [None]
  - INFECTION [None]
  - IRON DEFICIENCY ANAEMIA [None]
  - JOINT RANGE OF MOTION DECREASED [None]
  - OEDEMA PERIPHERAL [None]
  - OSTEOARTHRITIS [None]
  - PARAESTHESIA [None]
  - PERIPHERAL SENSORY NEUROPATHY [None]
  - PSORIASIS [None]
  - PSORIATIC ARTHROPATHY [None]
  - SKIN ULCER [None]
  - SLEEP APNOEA SYNDROME [None]
  - STRESS [None]
  - VENOUS INSUFFICIENCY [None]
  - WEIGHT INCREASED [None]
